FAERS Safety Report 12353097 (Version 1)
Quarter: 2016Q2

REPORT INFORMATION
  Report Type: Spontaneous
  Country: FR (occurrence: FR)
  Receive Date: 20160510
  Receipt Date: 20160510
  Transmission Date: 20160815
  Serious: Yes (Hospitalization)
  Sender: FDA-Public Use
  Company Number: FR-009507513-1605FRA002158

PATIENT
  Age: 54 Year
  Sex: Male

DRUGS (15)
  1. CORTANCYL [Concomitant]
     Active Substance: PREDNISONE
  2. CACIT VITAMINE D3 [Concomitant]
     Active Substance: CALCIUM CARBONATE\CHOLECALCIFEROL
  3. ZELITREX [Concomitant]
     Active Substance: VALACYCLOVIR HYDROCHLORIDE
  4. JAKAFI [Concomitant]
     Active Substance: RUXOLITINIB
  5. NOXAFIL [Suspect]
     Active Substance: POSACONAZOLE
     Indication: GRAFT VERSUS HOST DISEASE IN LIVER
  6. CANDESARTAN CILEXETIL. [Suspect]
     Active Substance: CANDESARTAN CILEXETIL
     Indication: B PRECURSOR TYPE ACUTE LEUKAEMIA
     Dosage: 16 MG, UNK
     Route: 048
     Dates: end: 20160201
  7. LERCANIDIPINE [Suspect]
     Active Substance: LERCANIDIPINE
     Indication: B PRECURSOR TYPE ACUTE LEUKAEMIA
     Dosage: 20 MG, QD
     Route: 048
     Dates: end: 20160204
  8. PANTOPRAZOLE [Concomitant]
     Active Substance: PANTOPRAZOLE SODIUM
  9. CANDESARTAN CILEXETIL. [Suspect]
     Active Substance: CANDESARTAN CILEXETIL
     Indication: GRAFT VERSUS HOST DISEASE IN LIVER
  10. LERCANIDIPINE [Suspect]
     Active Substance: LERCANIDIPINE
     Indication: GRAFT VERSUS HOST DISEASE IN LIVER
  11. MOVICOL [Concomitant]
     Active Substance: POLYETHYLENE GLYCOL 3350\POTASSIUM CHLORIDE\SODIUM BICARBONATE\SODIUM CHLORIDE
  12. URSODIOL. [Concomitant]
     Active Substance: URSODIOL
  13. CLAMOXYL [Concomitant]
     Active Substance: AMOXICILLIN\CLAVULANIC ACID
  14. NOXAFIL [Suspect]
     Active Substance: POSACONAZOLE
     Indication: B PRECURSOR TYPE ACUTE LEUKAEMIA
     Dosage: 3 DF, QD
     Route: 048
     Dates: start: 20160128, end: 20160204
  15. CETIRIZINE HYDROCHLORIDE. [Concomitant]
     Active Substance: CETIRIZINE HYDROCHLORIDE

REACTIONS (2)
  - Acute prerenal failure [Recovered/Resolved]
  - Metabolic acidosis [Recovered/Resolved]

NARRATIVE: CASE EVENT DATE: 20160201
